FAERS Safety Report 10950108 (Version 2)
Quarter: 2015Q2

REPORT INFORMATION
  Report Type: Spontaneous
  Country: SE (occurrence: SE)
  Receive Date: 20150324
  Receipt Date: 20150518
  Transmission Date: 20150821
  Serious: Yes (Other)
  Sender: FDA-Public Use
  Company Number: SE-SHIRE-SE201502415

PATIENT
  Sex: Male

DRUGS (1)
  1. ELVANSE [Suspect]
     Active Substance: LISDEXAMFETAMINE DIMESYLATE
     Indication: ATTENTION DEFICIT/HYPERACTIVITY DISORDER
     Dosage: 100 MG (TWO 50 MG  CAPSULES), 1X/DAY:QD
     Route: 048
     Dates: start: 2014, end: 201503

REACTIONS (2)
  - Muscle twitching [Not Recovered/Not Resolved]
  - Prescribed overdose [Recovered/Resolved]

NARRATIVE: CASE EVENT DATE: 2014
